FAERS Safety Report 5626378-9 (Version None)
Quarter: 2008Q1

REPORT INFORMATION
  Report Type: 
  Country: None (occurrence: None)
  Receive Date: 20080213
  Receipt Date: 20080213
  Transmission Date: 20080703
  Serious: Yes (Other)
  Sender: FDA-Public Use
  Company Number: None

PATIENT
  Age: 34 Year
  Sex: Female
  Weight: 81.6475 kg

DRUGS (1)
  1. VIOXX [Suspect]
     Indication: INFLAMMATION
     Dates: start: 20020101, end: 20020201

REACTIONS (2)
  - CARDIAC DISORDER [None]
  - HYPERTENSION [None]
